FAERS Safety Report 20517348 (Version 1)
Quarter: 2022Q1

REPORT INFORMATION
  Report Type: Spontaneous
  Country: MX (occurrence: MX)
  Receive Date: 20220225
  Receipt Date: 20220225
  Transmission Date: 20220424
  Serious: Yes (Hospitalization, Other)
  Sender: FDA-Public Use
  Company Number: MX-MLMSERVICE-20220214-3372330-1

PATIENT
  Age: 14 Year
  Sex: Male

DRUGS (6)
  1. CISPLATIN [Suspect]
     Active Substance: CISPLATIN
     Indication: Metastases to lung
     Dosage: TEN CYCLES
  2. CYCLOPHOSPHAMIDE [Suspect]
     Active Substance: CYCLOPHOSPHAMIDE
     Indication: Metastases to lung
  3. EPIRUBICIN [Suspect]
     Active Substance: EPIRUBICIN
     Indication: Metastases to lung
     Dosage: TEN CYCLES
  4. DEXAMETHASONE [Suspect]
     Active Substance: DEXAMETHASONE
     Indication: Metastases to lung
  5. PREDNISONE [Suspect]
     Active Substance: PREDNISONE
     Indication: Metastases to lung
  6. MESNA [Concomitant]
     Active Substance: MESNA

REACTIONS (5)
  - Lymphopenia [Recovered/Resolved]
  - Neutropenia [Recovered/Resolved]
  - Malassezia infection [Recovered/Resolved]
  - Seborrhoeic dermatitis [Recovered/Resolved]
  - Folliculitis [Recovered/Resolved]
